FAERS Safety Report 23106553 (Version 1)
Quarter: 2023Q4

REPORT INFORMATION
  Report Type: Report from Study
  Country: US (occurrence: US)
  Receive Date: 20231026
  Receipt Date: 20231026
  Transmission Date: 20240110
  Serious: Yes (Other)
  Sender: FDA-Public Use
  Company Number: US-ABBVIE-5462539

PATIENT
  Age: 46 Year
  Sex: Female

DRUGS (4)
  1. COMBIGAN [Suspect]
     Active Substance: BRIMONIDINE TARTRATE\TIMOLOL MALEATE
     Indication: Glaucoma
     Route: 047
     Dates: start: 2016, end: 2021
  2. TIMOPTIC [Concomitant]
     Active Substance: TIMOLOL MALEATE
     Indication: Glaucoma
     Dosage: EYE DROPS
     Dates: start: 2014, end: 2016
  3. COSOPT [Concomitant]
     Active Substance: DORZOLAMIDE HYDROCHLORIDE\TIMOLOL MALEATE
     Indication: Glaucoma
     Dosage: GENERIC?EYE DROPS?MORNING/AFTERNOON
     Dates: start: 202111
  4. LATANOPROST [Concomitant]
     Active Substance: LATANOPROST
     Indication: Glaucoma
     Dosage: DAILY AT NIGHT, STARTED WITH LEFT EYE ONLY BUT BOTH EYES AFTER SHUNT INSERTED
     Dates: start: 202111

REACTIONS (9)
  - Retinal detachment [Unknown]
  - Adhesion [Unknown]
  - Eye irritation [Unknown]
  - Ocular hyperaemia [Unknown]
  - Retinal haemorrhage [Recovered/Resolved with Sequelae]
  - Eye pain [Unknown]
  - Intraocular pressure increased [Unknown]
  - Glaucoma [Unknown]
  - Blindness unilateral [Recovered/Resolved with Sequelae]

NARRATIVE: CASE EVENT DATE: 20210101
